FAERS Safety Report 8604877-5 (Version None)
Quarter: 2012Q3

REPORT INFORMATION
  Report Type: 
  Country: None (occurrence: None)
  Receive Date: 20120820
  Receipt Date: 20120809
  Transmission Date: 20120928
  Serious: Yes (Other)
  Sender: FDA-Public Use
  Company Number: JP-ASTELLAS-2012US007060

PATIENT
  Sex: Female

DRUGS (21)
  1. NEXIUM [Concomitant]
     Indication: PRODUCT USED FOR UNKNOWN INDICATION
     Dosage: 20 MG, UID/QD
     Route: 048
     Dates: start: 20120424
  2. MUCOSTA [Concomitant]
     Indication: PRODUCT USED FOR UNKNOWN INDICATION
     Dosage: 300 MG, UID/QD
     Route: 048
     Dates: start: 20120425
  3. ERLOTINIB HYDROCHLORIDE [Suspect]
     Indication: ADENOCARCINOMA PANCREAS
     Dosage: 100 MG, UID/QD
     Route: 048
     Dates: start: 20120420
  4. GEMCITABINE HYDROCHLORIDE [Suspect]
     Dosage: 1000 MG/M2, UID/QD
     Route: 041
     Dates: start: 20120507, end: 20120507
  5. GEMCITABINE HYDROCHLORIDE [Suspect]
     Dosage: 1000 MG/M2, UID/QD
     Route: 041
     Dates: start: 20120525, end: 20120525
  6. LOCOID [Concomitant]
     Indication: PROPHYLAXIS
     Dosage: UNK
     Route: 065
     Dates: start: 20120425, end: 20120506
  7. GEMCITABINE HYDROCHLORIDE [Suspect]
     Dosage: 1000 MG/M2, UID/QD
     Route: 041
     Dates: start: 20120629, end: 20120629
  8. LOXOPROFEN [Concomitant]
     Indication: PRODUCT USED FOR UNKNOWN INDICATION
     Dosage: 180 MG, UID/QD
     Route: 048
  9. LOPERAMIDE HYDROCHLORIDE [Concomitant]
     Indication: PROPHYLAXIS
     Dosage: 3 MG, UID/QD
     Route: 048
     Dates: start: 20120425, end: 20120514
  10. RINDERON V [Concomitant]
     Indication: PROPHYLAXIS
     Dosage: UNK
     Route: 065
  11. LASIX [Concomitant]
     Indication: ADENOCARCINOMA PANCREAS
     Dosage: 20 MG, UID/QD
     Route: 048
     Dates: start: 20120622, end: 20120713
  12. GEMCITABINE HYDROCHLORIDE [Suspect]
     Indication: ADENOCARCINOMA PANCREAS
     Dosage: 1000 MG/M2, UID/QD
     Route: 041
     Dates: start: 20120420, end: 20120420
  13. GEMCITABINE HYDROCHLORIDE [Suspect]
     Dosage: 1000 MG/M2, UID/QD
     Route: 041
     Dates: start: 20120429, end: 20120429
  14. GEMCITABINE HYDROCHLORIDE [Suspect]
     Dosage: 1000 MG/M2, UID/QD
     Route: 041
     Dates: start: 20120622, end: 20120622
  15. GEMCITABINE HYDROCHLORIDE [Suspect]
     Dosage: 1000 MG/M2, UID/QD
     Route: 041
     Dates: start: 20120518, end: 20120518
  16. GEMCITABINE HYDROCHLORIDE [Suspect]
     Dosage: 1000 MG/M2, UID/QD
     Route: 041
     Dates: start: 20120713, end: 20120713
  17. GEMCITABINE HYDROCHLORIDE [Suspect]
     Dosage: 1000 MG/M2, UID/QD
     Route: 041
     Dates: start: 20120615, end: 20120615
  18. GEMCITABINE HYDROCHLORIDE [Suspect]
     Dosage: 1000 MG/M2, UID/QD
     Route: 041
     Dates: start: 20120601, end: 20120601
  19. GEMCITABINE HYDROCHLORIDE [Suspect]
     Dosage: 1000 MG/M2, UID/QD
     Route: 041
     Dates: start: 20120720, end: 20120720
  20. FERRUM                             /00023505/ [Concomitant]
     Indication: PRODUCT USED FOR UNKNOWN INDICATION
     Dosage: 100 MG, UID/QD
     Route: 048
     Dates: start: 20120421, end: 20120427
  21. ALDACTONE [Concomitant]
     Indication: ADENOCARCINOMA PANCREAS
     Dosage: 25 MG, UID/QD
     Route: 048
     Dates: start: 20120713, end: 20120727

REACTIONS (3)
  - DERMATITIS ACNEIFORM [None]
  - DIARRHOEA [None]
  - ANAEMIA [None]
